FAERS Safety Report 8244431-0 (Version None)
Quarter: 2012Q1

REPORT INFORMATION
  Report Type: 
  Country: None (occurrence: None)
  Receive Date: 20120329
  Receipt Date: 20120320
  Transmission Date: 20120608
  Serious: Yes (Hospitalization)
  Sender: FDA-Public Use
  Company Number: US-ABBOTT-11P-163-0867813-00

PATIENT
  Sex: Male
  Weight: 111.68 kg

DRUGS (10)
  1. HUMIRA [Suspect]
     Route: 058
     Dates: end: 20110825
  2. TAMSULOSIN HCL [Concomitant]
     Indication: BENIGN PROSTATIC HYPERPLASIA
     Dates: start: 20070101
  3. SIMVASTATIN [Concomitant]
     Indication: HYPERCHOLESTEROLAEMIA
     Dates: start: 20070101, end: 20110826
  4. BYSTOLIC [Concomitant]
     Indication: HYPERTENSION
     Dates: start: 20070101
  5. HUMIRA [Suspect]
     Indication: PSORIASIS
     Dosage: ONCE
     Route: 058
     Dates: start: 20110804, end: 20110804
  6. HUMIRA [Suspect]
     Route: 058
     Dates: start: 20111001
  7. VANOS [Concomitant]
     Indication: PSORIASIS
     Dates: start: 20110726
  8. AMLODIPINE [Concomitant]
     Indication: HYPERTENSION
     Dates: start: 20070101
  9. JANUMET [Concomitant]
     Indication: DIABETES MELLITUS
     Dosage: 50/500MG TWICE DAILY
     Dates: start: 20070101
  10. ASPIRIN [Concomitant]
     Indication: CARDIOVASCULAR EVENT PROPHYLAXIS
     Dates: start: 20070101

REACTIONS (4)
  - MYALGIA [None]
  - PALPITATIONS [None]
  - ARTHRALGIA [None]
  - CHEST PAIN [None]
